FAERS Safety Report 23503239 (Version 1)
Quarter: 2024Q1

REPORT INFORMATION
  Report Type: Report from Study
  Country: MX (occurrence: MX)
  Receive Date: 20240208
  Receipt Date: 20240208
  Transmission Date: 20240410
  Serious: Yes (Disabling)
  Sender: FDA-Public Use
  Company Number: MX-ABBVIE-5528628

PATIENT
  Age: 59 Year
  Sex: Female
  Weight: 78 kg

DRUGS (2)
  1. HUMIRA [Suspect]
     Active Substance: ADALIMUMAB
     Indication: Crohn^s disease
     Dosage: STRENGTH 40
     Route: 058
     Dates: start: 20180125, end: 20231201
  2. AZATHIOPRINE [Concomitant]
     Active Substance: AZATHIOPRINE
     Indication: Product used for unknown indication
     Dosage: 3 TABLETS, DAILY

REACTIONS (23)
  - Gait inability [Unknown]
  - Headache [Recovering/Resolving]
  - Crohn^s disease [Not Recovered/Not Resolved]
  - Asthenia [Not Recovered/Not Resolved]
  - Abdominal pain upper [Not Recovered/Not Resolved]
  - Blood pressure decreased [Not Recovered/Not Resolved]
  - Acne [Not Recovered/Not Resolved]
  - Inflammation [Not Recovered/Not Resolved]
  - Tachycardia [Recovering/Resolving]
  - Dry skin [Unknown]
  - Nausea [Recovering/Resolving]
  - Immunodeficiency [Recovering/Resolving]
  - Anaemia [Unknown]
  - Palpitations [Recovering/Resolving]
  - Haemoglobin decreased [Not Recovered/Not Resolved]
  - Blood uric acid increased [Recovered/Resolved]
  - Weight decreased [Not Recovered/Not Resolved]
  - Pyrexia [Unknown]
  - White blood cell count decreased [Unknown]
  - Skin disorder [Unknown]
  - Decreased appetite [Unknown]
  - Rash [Unknown]
  - Malaise [Unknown]

NARRATIVE: CASE EVENT DATE: 20231101
